FAERS Safety Report 6963700-5 (Version None)
Quarter: 2010Q3

REPORT INFORMATION
  Report Type: 
  Country: None (occurrence: None)
  Receive Date: 20100830
  Receipt Date: 20100813
  Transmission Date: 20110219
  Serious: Yes (Hospitalization)
  Sender: FDA-Public Use
  Company Number: 1000015323

PATIENT
  Age: 89 Year
  Sex: Female

DRUGS (5)
  1. ESCITALOPRAM [Suspect]
     Dosage: 10 MG (10 MG, 1 IN 1 D), ORAL
     Route: 048
     Dates: start: 20100510, end: 20100628
  2. KARDEGIC [Concomitant]
  3. AMLODIPINE [Concomitant]
  4. FUROSEMIDE (TABLETS) [Concomitant]
  5. PARIET [Concomitant]

REACTIONS (5)
  - BLOOD OSMOLARITY DECREASED [None]
  - FALL [None]
  - GENERAL PHYSICAL HEALTH DETERIORATION [None]
  - HYPONATRAEMIA [None]
  - PSYCHOMOTOR RETARDATION [None]
